FAERS Safety Report 9264304 (Version 2)
Quarter: 2013Q2

REPORT INFORMATION
  Report Type: Spontaneous
  Country: BR (occurrence: BR)
  Receive Date: 20130430
  Receipt Date: 20130528
  Transmission Date: 20140414
  Serious: Yes (Other)
  Sender: FDA-Public Use
  Company Number: BR-ELI_LILLY_AND_COMPANY-BR201304005568

PATIENT
  Sex: Female
  Weight: 78 kg

DRUGS (7)
  1. HUMALOG 50% LISPRO, 50% NPL [Suspect]
     Indication: DIABETES MELLITUS
     Dosage: 28 IU, EACH MORNING
     Route: 058
     Dates: start: 2011
  2. HUMALOG 50% LISPRO, 50% NPL [Suspect]
     Dosage: 12 IU, QD
     Route: 058
     Dates: start: 2011
  3. HUMALOG 50% LISPRO, 50% NPL [Suspect]
     Dosage: 14 IU, QD
     Route: 058
     Dates: start: 2011
  4. DIOVAN [Concomitant]
     Indication: BLOOD PRESSURE
     Dosage: UNK, UNKNOWN
     Route: 065
  5. METFORMIN [Concomitant]
     Indication: DIABETES MELLITUS
     Dosage: 850 MG, BID
     Route: 065
  6. SYNTHROID [Concomitant]
     Indication: THYROID DISORDER
     Dosage: 175 MG, QD
     Route: 065
  7. MILGAMMA [Concomitant]
     Indication: PAIN
     Dosage: 150 MG, QD
     Route: 065

REACTIONS (6)
  - Heart rate increased [Recovered/Resolved]
  - Cardiac disorder [Recovered/Resolved]
  - Hyperglycaemia [Not Recovered/Not Resolved]
  - Affect lability [Not Recovered/Not Resolved]
  - Wrong drug administered [Unknown]
  - Eye pain [Recovering/Resolving]
